FAERS Safety Report 15236578 (Version 2)
Quarter: 2018Q4

REPORT INFORMATION
  Report Type: Spontaneous
  Country: US (occurrence: US)
  Receive Date: 20180803
  Receipt Date: 20181228
  Transmission Date: 20190204
  Serious: No
  Sender: FDA-Public Use
  Company Number: US-PFIZER INC-2018308234

PATIENT
  Age: 79 Year
  Sex: Female
  Weight: 73 kg

DRUGS (1)
  1. INLYTA [Suspect]
     Active Substance: AXITINIB
     Indication: RENAL CANCER METASTATIC
     Dosage: 5 MG, 2X/DAY
     Route: 048
     Dates: start: 20180405, end: 201811

REACTIONS (2)
  - Fatigue [Unknown]
  - Back pain [Unknown]

NARRATIVE: CASE EVENT DATE: 2018
